FAERS Safety Report 16844346 (Version 1)
Quarter: 2019Q4

REPORT INFORMATION
  Report Type: Spontaneous
  Country: US (occurrence: US)
  Receive Date: 20190923
  Receipt Date: 20190923
  Transmission Date: 20200122
  Serious: Yes (Hospitalization)
  Sender: FDA-Public Use
  Company Number: None

PATIENT
  Age: 64 Year
  Sex: Female

DRUGS (15)
  1. ASPIRIN. [Concomitant]
     Active Substance: ASPIRIN
  2. CINNAMON. [Concomitant]
     Active Substance: CINNAMON
  3. GARLIC. [Concomitant]
     Active Substance: GARLIC
  4. MONTELUKAST [Concomitant]
     Active Substance: MONTELUKAST SODIUM
  5. NORVASC [Concomitant]
     Active Substance: AMLODIPINE BESYLATE
  6. LIPITOR [Concomitant]
     Active Substance: ATORVASTATIN CALCIUM
  7. LOSARTAN. [Concomitant]
     Active Substance: LOSARTAN
  8. TARGRETIN [Suspect]
     Active Substance: BEXAROTENE
     Indication: PRODUCT USED FOR UNKNOWN INDICATION
     Dosage: ?          OTHER FREQUENCY:UNKNOWN;?
  9. FISH OIL [Concomitant]
     Active Substance: FISH OIL
  10. FLAX SEED [Concomitant]
     Active Substance: FLAX SEED
  11. LEVOTHYROXIN [Concomitant]
     Active Substance: LEVOTHYROXINE
  12. ATORVASTATIN [Concomitant]
     Active Substance: ATORVASTATIN
  13. BEXAROTENE. [Concomitant]
     Active Substance: BEXAROTENE
  14. AMLODIPINE [Concomitant]
     Active Substance: AMLODIPINE BESYLATE
  15. ONE-A-DAY [Concomitant]
     Active Substance: VITAMINS

REACTIONS (1)
  - Hospitalisation [None]

NARRATIVE: CASE EVENT DATE: 20190922
